FAERS Safety Report 9233778 (Version 1)
Quarter: 2013Q2

REPORT INFORMATION
  Report Type: Spontaneous
  Country: US (occurrence: US)
  Receive Date: 20130416
  Receipt Date: 20130416
  Transmission Date: 20140414
  Serious: No
  Sender: FDA-Public Use
  Company Number: US-BANPHARM-20131064

PATIENT
  Age: 69 Year
  Sex: Female
  Weight: 99.79 kg

DRUGS (11)
  1. ALEVE LIQUID GELS 220MG [Suspect]
     Indication: PAIN
     Dosage: 2 DF, ONCE,
     Route: 048
     Dates: start: 20120708
  2. ACUPRIL [Concomitant]
  3. LIPITOR [Concomitant]
  4. ZETIA [Concomitant]
  5. FUROSEMIDE [Concomitant]
  6. GLYBURIDE [Concomitant]
  7. GENUVIA [Concomitant]
  8. LEVAMIER INSULIN [Concomitant]
  9. HUMALOG INSULIN [Concomitant]
  10. 325 MG GENERIC ASPIRIN [Concomitant]
  11. PLAVIX [Concomitant]

REACTIONS (1)
  - Drug ineffective [Unknown]
